FAERS Safety Report 5218867-6 (Version None)
Quarter: 2007Q1

REPORT INFORMATION
  Report Type: 
  Country: None (occurrence: None)
  Receive Date: 20070123
  Receipt Date: 20070109
  Transmission Date: 20070707
  Serious: Yes (Hospitalization)
  Sender: FDA-Public Use
  Company Number: 2007-152894-NL

PATIENT
  Age: 29 Year
  Sex: Female
  Weight: 98.9 kg

DRUGS (1)
  1. NUVARING [Suspect]
     Dosage: NI VAGINAL
     Route: 067
     Dates: start: 20060622, end: 20061115

REACTIONS (2)
  - RUPTURED ECTOPIC PREGNANCY [None]
  - UNINTENDED PREGNANCY [None]
